FAERS Safety Report 4273972-6 (Version None)
Quarter: 2004Q1

REPORT INFORMATION
  Report Type: 
  Country: None (occurrence: None)
  Receive Date: 20040115
  Receipt Date: 20040105
  Transmission Date: 20041129
  Serious: Yes (Hospitalization)
  Sender: FDA-Public Use
  Company Number: 2004193343FR

PATIENT
  Age: 83 Year
  Sex: Female

DRUGS (4)
  1. CELEBREX [Suspect]
     Dosage: ORAL
     Route: 048
     Dates: start: 20030415, end: 20031102
  2. DURAGESIC [Suspect]
     Dosage: 25 MG, TWICE WEEKLY, INTRADERMAL; 50 MG TWICE WEEKLY, INTRADERMAL
     Route: 023
     Dates: start: 20031018, end: 20031029
  3. DURAGESIC [Suspect]
     Dosage: 25 MG, TWICE WEEKLY, INTRADERMAL; 50 MG TWICE WEEKLY, INTRADERMAL
     Route: 023
     Dates: start: 20031030, end: 20031102
  4. NORFLOXACIN [Concomitant]

REACTIONS (1)
  - RHABDOMYOLYSIS [None]
